FAERS Safety Report 9949376 (Version 3)
Quarter: 2014Q2

REPORT INFORMATION
  Report Type: Spontaneous
  Country: JP (occurrence: JP)
  Receive Date: 20140304
  Receipt Date: 20140404
  Transmission Date: 20141212
  Serious: Yes (Death)
  Sender: FDA-Public Use
  Company Number: JP-ROCHE-1357986

PATIENT
  Age: 5 Year
  Sex: Female
  Weight: 18 kg

DRUGS (5)
  1. TAMIFLU [Suspect]
     Indication: INFLUENZA
     Route: 048
     Dates: start: 20140222, end: 20140222
  2. PERIACTIN [Concomitant]
     Route: 048
     Dates: start: 20140222, end: 20140222
  3. ASVERIN [Concomitant]
     Route: 048
     Dates: start: 20140222, end: 20140222
  4. MUCODYNE-DS [Concomitant]
     Route: 048
     Dates: start: 20140222, end: 20140222
  5. COCARL [Concomitant]
     Route: 048
     Dates: start: 20140222, end: 20140222

REACTIONS (1)
  - Sudden death [Fatal]
